FAERS Safety Report 7750530-X (Version None)
Quarter: 2011Q3

REPORT INFORMATION
  Report Type: 
  Country: None (occurrence: None)
  Receive Date: 20110914
  Receipt Date: 20110909
  Transmission Date: 20111222
  Serious: Yes (Hospitalization, Other)
  Sender: FDA-Public Use
  Company Number: DE-AMGEN-DEUSP2011043948

PATIENT
  Age: 27 Year
  Sex: Female
  Weight: 78 kg

DRUGS (6)
  1. MYCOPHENOLATE MOFETIL [Concomitant]
     Dosage: UNK
     Dates: start: 20101001, end: 20101001
  2. CYCLOPHOSPHAMIDE [Concomitant]
     Dosage: UNK
     Dates: start: 20101201, end: 20110201
  3. OMEPRAZOLE [Concomitant]
  4. CYCLOKAPRON [Concomitant]
  5. NPLATE [Suspect]
     Indication: IDIOPATHIC THROMBOCYTOPENIC PURPURA
     Dosage: 4 MUG/KG, UNK
     Route: 058
     Dates: start: 20100421
  6. RITUXIMAB [Concomitant]
     Dosage: UNK
     Dates: start: 20101001, end: 20101001

REACTIONS (6)
  - MOUTH HAEMORRHAGE [None]
  - GASTROINTESTINAL HAEMORRHAGE [None]
  - PLATELET COUNT DECREASED [None]
  - PETECHIAE [None]
  - ABDOMINAL PAIN [None]
  - EPISTAXIS [None]
